FAERS Safety Report 9284150 (Version 2)
Quarter: 2013Q3

REPORT INFORMATION
  Report Type: Report from Study
  Country: BR (occurrence: BR)
  Receive Date: 20130510
  Receipt Date: 20130731
  Transmission Date: 20140515
  Serious: Yes (Other)
  Sender: FDA-Public Use
  Company Number: PHHY2013BR046656

PATIENT
  Age: 64 Year
  Sex: Female

DRUGS (8)
  1. DIOVAN AMLO FIX [Suspect]
     Indication: HYPERTENSION
     Dosage: UNK UKN, (160/5 MG)
  2. DIOVAN AMLO FIX [Suspect]
     Dosage: 1 DF, (160/5 MG) DAILY
     Dates: start: 20130430
  3. VALSARTAN [Suspect]
     Indication: HYPERTENSION
     Dosage: 1 DF, (160 MG) DAILY
     Dates: end: 20130430
  4. INDAPAMIDE [Concomitant]
     Indication: POLYURIA
     Dosage: 1 DF, (1.5 MG) DAILY
     Route: 048
  5. GLIBENCLAMIDE [Concomitant]
     Indication: DIABETES MELLITUS
     Dosage: 1 DF, (2 MG) DAILY
     Route: 048
  6. METFORMIN [Concomitant]
     Indication: DIABETES MELLITUS
     Dosage: 3 DF, (850 MG) DAILY
     Route: 048
  7. AAS [Concomitant]
     Indication: BLOOD DISORDER
     Dosage: 1 DF, (100 MG) DAILY
     Route: 048
  8. OMEPRAZOLE [Concomitant]
     Indication: GASTRITIS
     Dosage: 1 DF, (20 MG) DAILY
     Route: 048

REACTIONS (8)
  - Infarction [Recovered/Resolved]
  - Hypertension [Recovered/Resolved]
  - Burning sensation [Unknown]
  - Retching [Recovered/Resolved]
  - Blood glucose increased [Recovered/Resolved]
  - Vomiting [Recovered/Resolved]
  - Malaise [Recovered/Resolved]
  - Diarrhoea [Recovered/Resolved]
